FAERS Safety Report 10052032 (Version 1)
Quarter: 2014Q2

REPORT INFORMATION
  Report Type: Spontaneous
  Country: US (occurrence: US)
  Receive Date: 20140402
  Receipt Date: 20140402
  Transmission Date: 20141212
  Serious: Yes (Other)
  Sender: FDA-Public Use
  Company Number: US-009507513-1403USA012471

PATIENT
  Sex: Male

DRUGS (2)
  1. SINEMET [Suspect]
     Dosage: UNK
     Route: 048
  2. PROGRAF [Interacting]

REACTIONS (3)
  - Renal transplant [Unknown]
  - Drug level decreased [Unknown]
  - Drug interaction [Unknown]
